FAERS Safety Report 25340496 (Version 1)
Quarter: 2025Q2

REPORT INFORMATION
  Report Type: Spontaneous
  Country: ES (occurrence: ES)
  Receive Date: 20250521
  Receipt Date: 20250521
  Transmission Date: 20250716
  Serious: Yes (Hospitalization)
  Sender: NOVO NORDISK
  Company Number: ES-NOVOPROD-1430889

PATIENT
  Age: 62 Year
  Weight: 62 kg

DRUGS (2)
  1. ALHEMO [Suspect]
     Active Substance: CONCIZUMAB-MTCI
     Indication: Product used for unknown indication
  2. NOVOSEVEN [Suspect]
     Active Substance: COAGULATION FACTOR VIIA RECOMBINANT HUMAN
     Indication: Product used for unknown indication
     Dosage: 5 MG, TID

REACTIONS (7)
  - Haematoma [Recovering/Resolving]
  - Haematuria [Unknown]
  - Haematoma [Unknown]
  - Haematoma [Unknown]
  - Haematoma [Unknown]
  - Spontaneous haemorrhage [Unknown]
  - Wrong technique in product usage process [Unknown]

NARRATIVE: CASE EVENT DATE: 20250101
